FAERS Safety Report 9141511 (Version 1)
Quarter: 2013Q1

REPORT INFORMATION
  Report Type: Spontaneous
  Country: US (occurrence: US)
  Receive Date: 20130305
  Receipt Date: 20130305
  Transmission Date: 20140127
  Serious: No
  Sender: FDA-Public Use
  Company Number: US-AMGEN-USASP2013010300

PATIENT
  Sex: Male

DRUGS (1)
  1. ENBREL [Suspect]
     Indication: PSORIASIS
     Dosage: UNK

REACTIONS (3)
  - Injection site swelling [Recovered/Resolved]
  - Injection site erythema [Recovered/Resolved]
  - Injection site reaction [Recovered/Resolved]
